FAERS Safety Report 12283417 (Version 2)
Quarter: 2016Q2

REPORT INFORMATION
  Report Type: Report from Study
  Country: US (occurrence: US)
  Receive Date: 20160419
  Receipt Date: 20160504
  Transmission Date: 20160815
  Serious: Yes (Other)
  Sender: FDA-Public Use
  Company Number: US-GILEAD-2016-0209134

PATIENT
  Age: 71 Year
  Sex: Female

DRUGS (1)
  1. AZTREONAM LYSINE [Suspect]
     Active Substance: AZTREONAM LYSINE
     Indication: PSEUDOMONAS INFECTION
     Dosage: 75 MG, ONE-TIME 28 DAY COURSE
     Route: 055
     Dates: start: 20160407

REACTIONS (5)
  - Lower respiratory tract infection [Unknown]
  - Pneumonia [Unknown]
  - Bronchiectasis [Unknown]
  - Pseudomonas infection [Unknown]
  - Off label use [Not Recovered/Not Resolved]
